FAERS Safety Report 4723450-2 (Version None)
Quarter: 2005Q3

REPORT INFORMATION
  Report Type: 
  Country: None (occurrence: None)
  Receive Date: 20050721
  Receipt Date: 20050721
  Transmission Date: 20060218
  Serious: Yes (Death)
  Sender: FDA-Public Use
  Company Number: None

PATIENT
  Age: 35 Year
  Sex: Male
  Weight: 82.5547 kg

DRUGS (1)
  1. DURAGESIC-100 [Suspect]
     Indication: PAIN
     Dosage: ONE PATCH  72 HOURS TRANSDERMAL
     Route: 062
     Dates: start: 20030306, end: 20030307

REACTIONS (3)
  - DRUG TOXICITY [None]
  - INADEQUATE ANALGESIA [None]
  - RASH [None]
